FAERS Safety Report 6805913-9 (Version None)
Quarter: 2010Q2

REPORT INFORMATION
  Report Type: 
  Country: None (occurrence: None)
  Receive Date: 20100629
  Receipt Date: 20071023
  Transmission Date: 20101027
  Serious: No
  Sender: FDA-Public Use
  Company Number: US-PFIZER INC-2007090116

PATIENT
  Sex: Female

DRUGS (4)
  1. XANAX [Suspect]
     Indication: VERTIGO
     Dates: start: 20060101, end: 20071021
  2. ALPRAZOLAM [Suspect]
     Indication: VERTIGO
     Dates: start: 20071021
  3. RANITIDINE [Concomitant]
  4. ZYRTEC [Concomitant]
     Indication: HYPERSENSITIVITY

REACTIONS (1)
  - URTICARIA [None]
